FAERS Safety Report 25640400 (Version 1)
Quarter: 2025Q3

REPORT INFORMATION
  Report Type: Spontaneous
  Country: US (occurrence: None)
  Receive Date: 20250804
  Receipt Date: 20250804
  Transmission Date: 20251020
  Serious: Yes (Death)
  Sender: FDA-CTU
  Company Number: None

PATIENT
  Age: 95 Year
  Sex: Female

DRUGS (1)
  1. PROCRIT [Suspect]
     Active Substance: ERYTHROPOIETIN
     Dosage: FREQUENCY : WEEKLY;?
     Route: 058
     Dates: start: 20250624

REACTIONS (1)
  - Death [None]

NARRATIVE: CASE EVENT DATE: 20250701
